FAERS Safety Report 8212369-0 (Version None)
Quarter: 2012Q1

REPORT INFORMATION
  Report Type: 
  Country: None (occurrence: None)
  Receive Date: 20120315
  Receipt Date: 20120307
  Transmission Date: 20120608
  Serious: Yes (Hospitalization, Disabling)
  Sender: FDA-Public Use
  Company Number: DE-JNJFOC-20100501926

PATIENT
  Sex: Male
  Weight: 78 kg

DRUGS (9)
  1. ALLOPURINOL [Concomitant]
     Route: 048
     Dates: start: 19901201, end: 20100704
  2. ALLOPURINOL [Concomitant]
     Route: 048
     Dates: start: 19900501
  3. ATACAND HCT [Concomitant]
     Indication: HYPERTENSION
     Dosage: DOSE REPORTED AS 8 / 6 / 75
     Route: 048
     Dates: start: 20050501, end: 20100704
  4. ALLOPURINOL [Concomitant]
     Indication: HYPERTENSION
     Route: 048
     Dates: start: 19900501
  5. ALLOPURINOL [Concomitant]
     Indication: GOUT
     Route: 048
     Dates: start: 19901201, end: 20100704
  6. ABIRATERONE ACETATE [Suspect]
     Route: 048
     Dates: start: 20100331
  7. PREDNISOLONE [Suspect]
     Indication: PROSTATE CANCER METASTATIC
     Route: 048
     Dates: start: 20100331
  8. ABIRATERONE ACETATE [Suspect]
     Indication: PROSTATE CANCER METASTATIC
     Route: 048
     Dates: end: 20100429
  9. NORVASC [Concomitant]
     Indication: HYPERTENSION
     Route: 048
     Dates: start: 20050501, end: 20100704

REACTIONS (2)
  - VERTIGO [None]
  - METASTASES TO CENTRAL NERVOUS SYSTEM [None]
